FAERS Safety Report 25387647 (Version 1)
Quarter: 2025Q2

REPORT INFORMATION
  Report Type: Spontaneous
  Country: US (occurrence: US)
  Receive Date: 20250603
  Receipt Date: 20250603
  Transmission Date: 20250716
  Serious: Yes (Hospitalization, Other)
  Sender: STRIDES
  Company Number: US-STRIDES ARCOLAB LIMITED-2025SP005127

PATIENT
  Age: 64 Year
  Sex: Male

DRUGS (2)
  1. SEVELAMER CARBONATE [Suspect]
     Active Substance: SEVELAMER CARBONATE
     Indication: End stage renal disease
     Route: 065
  2. SEVELAMER CARBONATE [Suspect]
     Active Substance: SEVELAMER CARBONATE
     Indication: Hyperphosphataemia

REACTIONS (2)
  - Oesophagitis ulcerative [Unknown]
  - Upper gastrointestinal haemorrhage [Unknown]
